FAERS Safety Report 18455797 (Version 3)
Quarter: 2021Q1

REPORT INFORMATION
  Report Type: Other
  Country: JP (occurrence: JP)
  Receive Date: 20201102
  Receipt Date: 20210302
  Transmission Date: 20210419
  Serious: Yes (Hospitalization)
  Sender: FDA-Public Use
  Company Number: JP-ROCHE-2706713

PATIENT
  Age: 35 Year
  Sex: Female
  Weight: 43 kg

DRUGS (2)
  1. PREDNISOLONE;TETRYZOLINE HYDROCHLORIDE [Concomitant]
     Indication: TAKAYASU^S ARTERITIS
     Route: 065
  2. ACTEMRA [Suspect]
     Active Substance: TOCILIZUMAB
     Indication: TAKAYASU^S ARTERITIS
     Dosage: DOSAGE IS UNCERTAIN.
     Route: 058
     Dates: start: 20180613

REACTIONS (4)
  - Skin ulcer [Recovering/Resolving]
  - Intentional product misuse [Unknown]
  - Thromboangiitis obliterans [Unknown]
  - Off label use [Unknown]

NARRATIVE: CASE EVENT DATE: 20190618
